FAERS Safety Report 9440920 (Version 2)
Quarter: 2013Q3

REPORT INFORMATION
  Report Type: Spontaneous
  Country: NL (occurrence: IT)
  Receive Date: 20130805
  Receipt Date: 20130807
  Transmission Date: 20140515
  Serious: Yes (Disabling)
  Sender: FDA-Public Use
  Company Number: PHHY2013IT081927

PATIENT
  Sex: Female

DRUGS (14)
  1. ZOMETA [Suspect]
     Indication: BREAST CANCER
     Dosage: 1 DF, MONTHLY
     Route: 042
     Dates: start: 20121114, end: 20130410
  2. AVASTIN [Suspect]
     Indication: BREAST CANCER
     Dosage: 1 DF, CYCLIC (EVERY 2 WEEKS)
     Route: 042
     Dates: start: 20121122, end: 20130228
  3. PACLITAXEL [Concomitant]
     Dosage: UNK UKN, UNK
     Dates: start: 20121129, end: 20130509
  4. OMEPRAZEN [Concomitant]
     Dosage: 20 MG, UNK
  5. SEQUACOR [Concomitant]
     Dosage: 10 MG, UNK
  6. ARANESP [Concomitant]
     Dosage: UNK UKN, UNK
  7. DOBETIN [Concomitant]
     Dosage: UNK UKN, UNK
  8. CITOFOLIN [Concomitant]
     Dosage: UNK UKN, UNK
  9. DELTACORTENE [Concomitant]
     Dosage: 12.5 MG, UNK
  10. DUROGESIC [Concomitant]
     Dosage: UNK UKN, UNK
  11. MAG 2 [Concomitant]
     Dosage: UNK UKN, UNK
  12. LEVOPRAID [Concomitant]
     Dosage: UNK UKN, UNK
  13. LETRIX [Concomitant]
     Dosage: UNK UKN, UNK
  14. SIDERAL [Concomitant]
     Dosage: UNK UKN, UNK

REACTIONS (1)
  - Osteonecrosis of jaw [Unknown]
